FAERS Safety Report 10472788 (Version 1)
Quarter: 2014Q3

REPORT INFORMATION
  Report Type: Report from Study
  Country: JP (occurrence: JP)
  Receive Date: 20140924
  Receipt Date: 20140924
  Transmission Date: 20150326
  Serious: Yes (Other)
  Sender: FDA-Public Use
  Company Number: JP-JNJFOC-20140919567

PATIENT
  Age: 78 Year
  Sex: Female
  Weight: 49 kg

DRUGS (8)
  1. SOVRIAD [Suspect]
     Active Substance: SIMEPREVIR
     Indication: CHRONIC HEPATITIS C
     Route: 048
     Dates: start: 20140124, end: 20140417
  2. RIBAVIRIN. [Suspect]
     Active Substance: RIBAVIRIN
     Indication: CHRONIC HEPATITIS C
     Route: 048
     Dates: start: 20140124
  3. MOHRUS TAPE [Concomitant]
     Active Substance: KETOPROFEN
     Route: 062
  4. HALCION [Concomitant]
     Active Substance: TRIAZOLAM
     Dosage: 0.125-0.25 MG A DAY (ADJUSTMENT BY PATIENT)
     Route: 048
  5. CALONAL [Concomitant]
     Active Substance: ACETAMINOPHEN
     Route: 048
     Dates: start: 20140124, end: 20140131
  6. PEGINTRON [Suspect]
     Active Substance: PEGINTERFERON ALFA-2B
     Indication: CHRONIC HEPATITIS C
     Route: 058
     Dates: start: 20140124
  7. NU-LOTAN [Concomitant]
     Active Substance: LOSARTAN POTASSIUM
     Route: 048
  8. SOLANAX [Concomitant]
     Active Substance: ALPRAZOLAM
     Route: 048

REACTIONS (3)
  - Platelet count decreased [Not Recovered/Not Resolved]
  - Insomnia [Recovering/Resolving]
  - Anaemia [Not Recovered/Not Resolved]

NARRATIVE: CASE EVENT DATE: 20140207
